FAERS Safety Report 12502941 (Version 1)
Quarter: 2016Q2

REPORT INFORMATION
  Report Type: Spontaneous
  Country: US (occurrence: US)
  Receive Date: 20160628
  Receipt Date: 20160628
  Transmission Date: 20160815
  Serious: Yes (Hospitalization, Other)
  Sender: FDA-Public Use
  Company Number: US-APOTEX-2016AP009265

PATIENT
  Age: 47 Year
  Sex: Female

DRUGS (1)
  1. METFORMIN HYDROCHLORIDE. [Suspect]
     Active Substance: METFORMIN HYDROCHLORIDE
     Indication: TYPE 2 DIABETES MELLITUS
     Dosage: 1000 MG, BID
     Route: 065

REACTIONS (12)
  - Vomiting [Recovering/Resolving]
  - Nausea [Recovering/Resolving]
  - Paraesthesia [Recovering/Resolving]
  - Hypomagnesaemia [Recovering/Resolving]
  - Paraesthesia oral [Recovering/Resolving]
  - Hypoaesthesia oral [Recovering/Resolving]
  - Incorrect dose administered [Recovering/Resolving]
  - Dizziness [Recovering/Resolving]
  - Hypokalaemia [Recovering/Resolving]
  - Diarrhoea [Recovering/Resolving]
  - Asthenia [Recovering/Resolving]
  - Hypocalcaemia [Recovering/Resolving]
